FAERS Safety Report 7298364-7 (Version None)
Quarter: 2011Q1

REPORT INFORMATION
  Report Type: 
  Country: None (occurrence: None)
  Receive Date: 20110217
  Receipt Date: 20110210
  Transmission Date: 20110831
  Serious: Yes (Death, Other)
  Sender: FDA-Public Use
  Company Number: GB-JNJFOC-20090507136

PATIENT
  Sex: Female
  Weight: 97 kg

DRUGS (4)
  1. METHOTREXATE [Concomitant]
  2. REMICADE [Suspect]
     Indication: RHEUMATOID ARTHRITIS
     Route: 042
  3. DEPO-MEDROL [Concomitant]
  4. ACETAMINOPHEN WITH PROPOXYPHENE HCL TAB [Concomitant]

REACTIONS (3)
  - NON-SMALL CELL LUNG CANCER [None]
  - DEEP VEIN THROMBOSIS [None]
  - LUNG SQUAMOUS CELL CARCINOMA STAGE II [None]
